FAERS Safety Report 5578419-5 (Version None)
Quarter: 2007Q4

REPORT INFORMATION
  Report Type: 
  Country: None (occurrence: None)
  Receive Date: 20071231
  Receipt Date: 20071221
  Transmission Date: 20080405
  Serious: Yes (Hospitalization)
  Sender: FDA-Public Use
  Company Number: ES-PFIZER INC-2007108249

PATIENT
  Age: 84 Year
  Sex: Female

DRUGS (6)
  1. PREVENCOR [Suspect]
     Route: 048
  2. NITRO-DUR [Interacting]
     Indication: MYOCARDIAL ISCHAEMIA
     Route: 062
     Dates: start: 20000101, end: 20070501
  3. SEGURIL [Interacting]
     Route: 048
  4. CLOPIDOGREL [Interacting]
     Route: 048
  5. TRANGOREX [Interacting]
     Route: 048
  6. AAS [Interacting]
     Route: 048

REACTIONS (2)
  - COOMBS POSITIVE HAEMOLYTIC ANAEMIA [None]
  - DRUG INTERACTION [None]
